FAERS Safety Report 7213439-6 (Version None)
Quarter: 2011Q1

REPORT INFORMATION
  Report Type: 
  Country: None (occurrence: None)
  Receive Date: 20110106
  Receipt Date: 20110104
  Transmission Date: 20110831
  Serious: Yes (Other)
  Sender: FDA-Public Use
  Company Number: US-AMGEN-USASP2010006366

PATIENT

DRUGS (20)
  1. PROCHLORPERAZINE MALEATE [Concomitant]
     Dosage: 6 MG, PRN
     Route: 048
  2. TRAVATAN [Concomitant]
  3. PRED FORTE [Concomitant]
  4. COREG [Concomitant]
     Dosage: 3.125 MG, BID
     Route: 048
  5. KLOR-CON M20 [Concomitant]
     Dosage: 20 MEQ, 2 TIMES/WK
     Route: 048
  6. PREDNISONE [Concomitant]
     Dosage: 1 MG, UNK
     Route: 048
  7. ADVAIR HFA [Concomitant]
  8. PRILOSEC [Concomitant]
     Dosage: 20 MG, QD
     Route: 048
  9. SYNTHROID [Concomitant]
     Dosage: 100 A?G, QD
     Route: 048
  10. NPLATE [Suspect]
     Indication: IDIOPATHIC THROMBOCYTOPENIC PURPURA
     Dosage: UNK
     Dates: start: 20100515
  11. IMMUNE GLOBULIN NOS [Concomitant]
  12. RITUXIMAB [Concomitant]
  13. SLOW MAG [Concomitant]
     Dosage: 64 MG, UNK
     Route: 048
  14. ATROPINE SULFATE [Concomitant]
  15. COUMADIN [Concomitant]
     Dosage: 2 MG, UNK
     Route: 048
  16. CORTICOSTEROIDS [Concomitant]
  17. COSOPT [Concomitant]
  18. AMIODARONE HCL [Concomitant]
     Dosage: UNK UNK, QD
     Route: 048
  19. BUMETANIDE [Concomitant]
     Dosage: 0.5 MG, 2 TIMES/WK
  20. ZOCOR [Concomitant]
     Dosage: 40 MG, UNK
     Route: 048

REACTIONS (10)
  - CHROMOSOME ANALYSIS ABNORMAL [None]
  - OEDEMA PERIPHERAL [None]
  - EYELID PTOSIS [None]
  - SKIN DISORDER [None]
  - WHEEZING [None]
  - ECCHYMOSIS [None]
  - THROMBOCYTOPENIA [None]
  - ARTHRALGIA [None]
  - CHRONIC MYELOID LEUKAEMIA [None]
  - ABDOMINAL PAIN [None]
